FAERS Safety Report 17084310 (Version 4)
Quarter: 2020Q1

REPORT INFORMATION
  Report Type: Spontaneous
  Country: MX (occurrence: MX)
  Receive Date: 20191127
  Receipt Date: 20200323
  Transmission Date: 20200409
  Serious: Yes (Other)
  Sender: FDA-Public Use
  Company Number: NVSC2019MX049230

PATIENT
  Age: 62 Year
  Sex: Female
  Weight: 46 kg

DRUGS (4)
  1. VALSARTAN. [Concomitant]
     Active Substance: VALSARTAN
     Indication: HYPERTENSION
     Dosage: 1 DF, QD (STARTED 2 YEARS AGO AND STOPPED 8 MONTHS AGO)
     Route: 048
  2. DIOVAN [Suspect]
     Active Substance: VALSARTAN
     Indication: HYPERTENSION
     Dosage: 1 DF, QD (STARTED 3 YEARS AGO AND STOPPED 2 YEARS AGO)
     Route: 048
  3. VALSARTAN. [Concomitant]
     Active Substance: VALSARTAN
     Dosage: 1 DF, QD (STARTED 8 MONTHS AGO AND STOPPED 8 MONTHS AGO)
     Route: 048
  4. DIOVAN [Suspect]
     Active Substance: VALSARTAN
     Dosage: 1 DF, QD
     Route: 048
     Dates: start: 201902

REACTIONS (5)
  - Blood pressure increased [Recovered/Resolved]
  - Wrong technique in product usage process [Unknown]
  - Poisoning [Recovered/Resolved]
  - Mood altered [Unknown]
  - Urticaria [Recovered/Resolved]

NARRATIVE: CASE EVENT DATE: 201902
